FAERS Safety Report 9322280 (Version 2)
Quarter: 2013Q3

REPORT INFORMATION
  Report Type: Spontaneous
  Country: IT (occurrence: IT)
  Receive Date: 20130531
  Receipt Date: 20130708
  Transmission Date: 20140515
  Serious: Yes (Hospitalization)
  Sender: FDA-Public Use
  Company Number: IT-GLAXOSMITHKLINE-B0894411A

PATIENT
  Age: 82 Year
  Sex: Female

DRUGS (3)
  1. RYTMONORM [Suspect]
     Indication: ATRIAL FIBRILLATION
     Dosage: 2CAP PER DAY
     Route: 048
     Dates: start: 20120913, end: 20130313
  2. COAPROVEL [Concomitant]
  3. TRIATEC [Concomitant]
     Indication: HYPERTENSION
     Dosage: 10MG PER DAY
     Route: 048

REACTIONS (4)
  - Atrioventricular block first degree [Recovered/Resolved with Sequelae]
  - Nodal arrhythmia [Recovered/Resolved with Sequelae]
  - Syncope [Recovered/Resolved with Sequelae]
  - Nodal arrhythmia [Recovered/Resolved with Sequelae]
